FAERS Safety Report 9663652 (Version 1)
Quarter: 2013Q4

REPORT INFORMATION
  Report Type: Spontaneous
  Country: US (occurrence: None)
  Receive Date: 20131030
  Receipt Date: 20131030
  Transmission Date: 20140711
  Serious: Yes (Disabling, Other)
  Sender: FDA-Public Use
  Company Number: None

PATIENT
  Age: 40 Year
  Sex: Male
  Weight: 90.72 kg

DRUGS (1)
  1. TESTOPEL [Suspect]
     Indication: HYPOGONADISM
     Dosage: 14 PELLETS GIVEN INTO/UNDER THE SKIN
     Dates: start: 20131025, end: 20131025

REACTIONS (2)
  - Cellulitis [None]
  - Staphylococcal infection [None]
